FAERS Safety Report 18453694 (Version 2)
Quarter: 2020Q4

REPORT INFORMATION
  Report Type: Spontaneous
  Country: US (occurrence: US)
  Receive Date: 20201102
  Receipt Date: 20201110
  Transmission Date: 20210114
  Serious: No
  Sender: FDA-Public Use
  Company Number: US-VERTEX PHARMACEUTICALS-2020-021234

PATIENT
  Sex: Female

DRUGS (4)
  1. LINEZOLID. [Concomitant]
     Active Substance: LINEZOLID
     Indication: ANXIETY
  2. TRIKAFTA [Suspect]
     Active Substance: ELEXACAFTOR\IVACAFTOR\TEZACAFTOR
     Dosage: STOPPED PM TABLET
     Route: 048
     Dates: start: 202008
  3. TRIKAFTA [Suspect]
     Active Substance: ELEXACAFTOR\IVACAFTOR\TEZACAFTOR
     Indication: CYSTIC FIBROSIS
     Dosage: 100MG ELEXACAFTOR/50MG TEZACAFTOR/75MG IVACAFTOR AND 150MG IVACAFTOR, FREQ UNK
     Route: 048
     Dates: start: 202002, end: 202008
  4. ALPRAZOLAM. [Concomitant]
     Active Substance: ALPRAZOLAM
     Indication: ANXIETY

REACTIONS (15)
  - Photophobia [Unknown]
  - Body dysmorphic disorder [Unknown]
  - Initial insomnia [Unknown]
  - Libido increased [Unknown]
  - Confusional state [Unknown]
  - Mood swings [Unknown]
  - Anxiety [Unknown]
  - Apathy [Unknown]
  - Memory impairment [Unknown]
  - Depression [Unknown]
  - Taste disorder [Unknown]
  - Hyperacusis [Unknown]
  - Middle insomnia [Unknown]
  - Psychomotor hyperactivity [Unknown]
  - Aphasia [Unknown]

NARRATIVE: CASE EVENT DATE: 202004
